FAERS Safety Report 9656431 (Version 1)
Quarter: 2013Q4

REPORT INFORMATION
  Report Type: Spontaneous
  Country: US (occurrence: US)
  Receive Date: 20131030
  Receipt Date: 20131030
  Transmission Date: 20140711
  Serious: Yes (Other)
  Sender: FDA-Public Use
  Company Number: US-BAYER-2013-129839

PATIENT
  Age: 19 Year
  Sex: Female

DRUGS (1)
  1. MIRENA [Suspect]
     Indication: CONTRACEPTION
     Dosage: 20 ?G/D, CONT
     Route: 015
     Dates: start: 201212

REACTIONS (13)
  - Abdominal pain lower [None]
  - Dyspareunia [None]
  - Amenorrhoea [None]
  - Abdominal pain lower [None]
  - Abdominal pain [None]
  - Discomfort [None]
  - Vaginal haemorrhage [None]
  - Pregnancy with contraceptive device [None]
  - Abortion spontaneous [None]
  - Drug ineffective [None]
  - Pelvic discomfort [None]
  - Haemorrhage in pregnancy [None]
  - Dyspareunia [None]
